FAERS Safety Report 18507589 (Version 1)
Quarter: 2020Q4

REPORT INFORMATION
  Report Type: Report from Study
  Country: US (occurrence: US)
  Receive Date: 20201116
  Receipt Date: 20201116
  Transmission Date: 20210114
  Serious: Yes (Disabling, Other)
  Sender: FDA-Public Use
  Company Number: US-TEVA-2020-US-1837259

PATIENT
  Age: 51 Year
  Sex: Female

DRUGS (3)
  1. COPAXONE [Suspect]
     Active Substance: GLATIRAMER ACETATE
     Route: 065
  2. GENERIC GA 40 MG (GLATIRAMER ACETATE) [Suspect]
     Active Substance: GLATIRAMER ACETATE
     Dates: start: 202003
  3. COPAXONE [Suspect]
     Active Substance: GLATIRAMER ACETATE
     Dates: start: 20171209, end: 20200229

REACTIONS (16)
  - Hypotension [Unknown]
  - Dyspnoea [Recovered/Resolved]
  - Chest discomfort [Unknown]
  - Disability [Not Recovered/Not Resolved]
  - Cough [Unknown]
  - Feeling abnormal [Unknown]
  - Injection site swelling [Unknown]
  - Flushing [Unknown]
  - Heart rate increased [Unknown]
  - Injection site reaction [Unknown]
  - Dyspnoea [Unknown]
  - Anaphylactic reaction [Unknown]
  - Flushing [Recovered/Resolved]
  - Hypertension [Unknown]
  - Heart rate decreased [Unknown]
  - Impaired work ability [Not Recovered/Not Resolved]

NARRATIVE: CASE EVENT DATE: 2020
